FAERS Safety Report 4664149-0 (Version None)
Quarter: 2005Q2

REPORT INFORMATION
  Report Type: 
  Country: None (occurrence: None)
  Receive Date: 20050516
  Receipt Date: 20050516
  Transmission Date: 20051028
  Serious: Yes (Hospitalization)
  Sender: FDA-Public Use
  Company Number: None

PATIENT
  Age: 58 Year
  Sex: Male

DRUGS (10)
  1. HYDROXYUREA [Suspect]
     Indication: ESSENTIAL THROMBOCYTHAEMIA
     Dosage: 500MG  PO TID
     Route: 048
     Dates: start: 20020101, end: 20050315
  2. TOPIRAMATE [Suspect]
     Indication: ALCOHOLISM
     Dosage: 50MG  PO BID
     Route: 048
     Dates: start: 20040825, end: 20050315
  3. TOPIRAMATE [Suspect]
     Indication: DYSTHYMIC DISORDER
     Dosage: 50MG  PO BID
     Route: 048
     Dates: start: 20040825, end: 20050315
  4. TOPIRAMATE [Suspect]
     Indication: MAJOR DEPRESSION
     Dosage: 50MG  PO BID
     Route: 048
     Dates: start: 20040825, end: 20050315
  5. TOPIRAMATE [Suspect]
     Indication: POST-TRAUMATIC STRESS DISORDER
     Dosage: 50MG  PO BID
     Route: 048
     Dates: start: 20040825, end: 20050315
  6. HYDROXYUREA [Concomitant]
  7. METOPROLOL [Concomitant]
  8. CITALOPRAM [Concomitant]
  9. MIRTAZAPINE [Concomitant]
  10. TOPIRAMATE [Concomitant]

REACTIONS (3)
  - HAEMATOCRIT DECREASED [None]
  - PANCYTOPENIA [None]
  - WHITE BLOOD CELL COUNT ABNORMAL [None]
